FAERS Safety Report 22035844 (Version 1)
Quarter: 2023Q1

REPORT INFORMATION
  Report Type: Spontaneous
  Country: US (occurrence: None)
  Receive Date: 20230222
  Receipt Date: 20230222
  Transmission Date: 20230418
  Serious: Yes (Death)
  Sender: FDA-Public Use
  Company Number: None

PATIENT
  Age: 6 Year
  Sex: Male

DRUGS (2)
  1. BETHKIS [Suspect]
     Active Substance: TOBRAMYCIN
     Indication: Bacterial infection
     Dosage: OTHER QUANTITY : 300MG/4ML;?FREQUENCY : TWICE A DAY;?
     Route: 055
     Dates: start: 20221230, end: 20230215
  2. SOD CHL 0.9% 3ML 3=1 NEB [Concomitant]

REACTIONS (1)
  - Death [None]

NARRATIVE: CASE EVENT DATE: 20230215
